FAERS Safety Report 25723837 (Version 1)
Quarter: 2025Q3

REPORT INFORMATION
  Report Type: Spontaneous
  Country: CN (occurrence: CN)
  Receive Date: 20250825
  Receipt Date: 20250825
  Transmission Date: 20251021
  Serious: Yes (Hospitalization)
  Sender: JOHNSON AND JOHNSON
  Company Number: CN-JNJFOC-20250823218

PATIENT
  Age: 82 Year
  Sex: Male

DRUGS (4)
  1. RISPERIDONE [Suspect]
     Active Substance: RISPERIDONE
     Indication: Delusion
     Route: 048
     Dates: start: 20250805, end: 20250807
  2. RISPERIDONE [Suspect]
     Active Substance: RISPERIDONE
     Indication: Dysphoria
  3. RISPERIDONE [Suspect]
     Active Substance: RISPERIDONE
     Indication: Disorganised speech
  4. ZANUBRUTINIB [Concomitant]
     Active Substance: ZANUBRUTINIB
     Indication: Tumour vaccine therapy
     Route: 048
     Dates: start: 20250808, end: 20250810

REACTIONS (1)
  - Dermatitis allergic [Recovering/Resolving]

NARRATIVE: CASE EVENT DATE: 20250807
